FAERS Safety Report 5768969-0 (Version None)
Quarter: 2008Q2

REPORT INFORMATION
  Report Type: 
  Country: None (occurrence: None)
  Receive Date: 20080610
  Receipt Date: 20080529
  Transmission Date: 20081010
  Serious: Yes (Other)
  Sender: FDA-Public Use
  Company Number: GXKR2008GB02056

PATIENT
  Age: 69 Year
  Sex: Female

DRUGS (4)
  1. WARFARIN SODIUM [Suspect]
     Indication: ARRHYTHMIA SUPRAVENTRICULAR
     Dosage: ORAL
     Route: 048
     Dates: start: 20051201
  2. CHAMOMILE (CHAMOMILE, CHAMOMILLA RECUTITA) [Suspect]
     Dates: start: 20080201
  3. GINSENG EXTRACT (PANAX GINSENG EXTRACT) [Suspect]
     Dates: start: 20080201
  4. CAMELLIA SINENSIS (CAMELLIA SINENSIS, TEA, GREEN) [Concomitant]

REACTIONS (2)
  - FOOD INTERACTION [None]
  - INTERNATIONAL NORMALISED RATIO INCREASED [None]
